FAERS Safety Report 9692971 (Version 2)
Quarter: 2013Q4

REPORT INFORMATION
  Report Type: Spontaneous
  Country: US (occurrence: US)
  Receive Date: 20131118
  Receipt Date: 20131119
  Transmission Date: 20140711
  Serious: Yes (Life-Threatening, Hospitalization)
  Sender: FDA-Public Use
  Company Number: US-B.I. PHARMACEUTICALS,INC./RIDGEFIELD-2013-BI-37761BP

PATIENT
  Age: 83 Year
  Sex: Female

DRUGS (6)
  1. PRADAXA [Suspect]
     Indication: ATRIAL FIBRILLATION
     Dosage: 300 MG
     Route: 048
     Dates: start: 20131029, end: 20131030
  2. LASIX [Concomitant]
  3. LEVOTHYROXIN [Concomitant]
  4. PRAVASTATIN [Concomitant]
  5. TEMAZEPAM [Concomitant]
  6. TRAMADOL [Concomitant]

REACTIONS (1)
  - Myocardial infarction [Recovered/Resolved]
